FAERS Safety Report 8278268-3 (Version None)
Quarter: 2012Q2

REPORT INFORMATION
  Report Type: 
  Country: None (occurrence: None)
  Receive Date: 20120412
  Receipt Date: 20110719
  Transmission Date: 20120825
  Serious: No
  Sender: FDA-Public Use
  Company Number: US-ASTRAZENECA-2011SE43038

PATIENT
  Age: 79 Year
  Sex: Female
  Weight: 56.2 kg

DRUGS (1)
  1. NEXIUM [Suspect]
     Route: 048
     Dates: start: 20050101, end: 20110716

REACTIONS (1)
  - TENDON RUPTURE [None]
